FAERS Safety Report 21610504 (Version 1)
Quarter: 2022Q4

REPORT INFORMATION
  Report Type: Report from Study
  Country: US (occurrence: US)
  Receive Date: 20221117
  Receipt Date: 20221117
  Transmission Date: 20230113
  Serious: No
  Sender: FDA-Public Use
  Company Number: US-ABBVIE-22K-163-4417371-00

PATIENT
  Sex: Male

DRUGS (3)
  1. SKYRIZI [Suspect]
     Active Substance: RISANKIZUMAB-RZAA
     Indication: Psoriasis
     Dosage: WEEK 0?FREQUENCY TEXT: 150MG
     Route: 058
     Dates: start: 20220504, end: 20220504
  2. SKYRIZI [Suspect]
     Active Substance: RISANKIZUMAB-RZAA
     Indication: Psoriasis
     Dosage: WEEK 4?FREQUENCY TEXT: 150MG
     Route: 058
     Dates: start: 20220615, end: 2022
  3. SKYRIZI [Suspect]
     Active Substance: RISANKIZUMAB-RZAA
     Dosage: EVERY 12 WEEKS?FREQUENCY TEXT: 150MG
     Route: 058
     Dates: start: 2022

REACTIONS (4)
  - Arthritis [Unknown]
  - Diarrhoea [Unknown]
  - Pain [Unknown]
  - Skin plaque [Unknown]

NARRATIVE: CASE EVENT DATE: 20220101
